FAERS Safety Report 9631113 (Version 7)
Quarter: 2013Q4

REPORT INFORMATION
  Report Type: Spontaneous
  Country: US (occurrence: US)
  Receive Date: 20131018
  Receipt Date: 20131209
  Transmission Date: 20140711
  Serious: Yes (Hospitalization, Other)
  Sender: FDA-Public Use
  Company Number: US-PERRIGO-13US010439

PATIENT
  Sex: Female

DRUGS (5)
  1. CETIRIZINE 10MG 4H2 [Suspect]
     Indication: PRODUCT USED FOR UNKNOWN INDICATION
     Dosage: 10 MG, QD
     Route: 048
     Dates: end: 20131007
  2. CETIRIZINE 10MG 4H2 [Suspect]
     Dosage: UNK
     Route: 048
     Dates: end: 20131007
  3. ASPIRIN [Concomitant]
     Indication: PRODUCT USED FOR UNKNOWN INDICATION
     Dosage: UNK
     Route: 048
  4. PLAVIX [Concomitant]
     Indication: PRODUCT USED FOR UNKNOWN INDICATION
     Dosage: UNK
     Route: 048
  5. PROTONIX [Concomitant]
     Indication: PRODUCT USED FOR UNKNOWN INDICATION
     Dosage: UNK
     Route: 048

REACTIONS (13)
  - Gastrointestinal disorder [Recovering/Resolving]
  - Arrhythmia [Recovering/Resolving]
  - Gait disturbance [Unknown]
  - Bedridden [Not Recovered/Not Resolved]
  - Hypertension [Unknown]
  - Gastric disorder [Unknown]
  - Abdominal distension [Unknown]
  - Sleep disorder [Not Recovered/Not Resolved]
  - Malaise [Unknown]
  - Fatigue [Not Recovered/Not Resolved]
  - Eating disorder [Unknown]
  - Pain [Unknown]
  - Toxicity to various agents [Unknown]
